FAERS Safety Report 21354205 (Version 2)
Quarter: 2022Q3

REPORT INFORMATION
  Report Type: Spontaneous
  Country: US (occurrence: US)
  Receive Date: 20220920
  Receipt Date: 20220923
  Transmission Date: 20221026
  Serious: No
  Sender: FDA-Public Use
  Company Number: US-NOVARTISTESTPH-NVSC2022US212001

PATIENT
  Age: 96 Year
  Sex: Female

DRUGS (2)
  1. VOLTAREN [Suspect]
     Active Substance: DICLOFENAC SODIUM
     Indication: Arthritis
     Dosage: UNK
     Route: 065
     Dates: start: 20220915, end: 20220915
  2. VOLTAREN [Suspect]
     Active Substance: DICLOFENAC SODIUM
     Indication: Back pain

REACTIONS (2)
  - Product administered at inappropriate site [Unknown]
  - Product use in unapproved indication [Unknown]
